FAERS Safety Report 10463882 (Version 17)
Quarter: 2015Q3

REPORT INFORMATION
  Report Type: Report from Study
  Country: JP (occurrence: JP)
  Receive Date: 20140919
  Receipt Date: 20150730
  Transmission Date: 20151125
  Serious: Yes (Hospitalization)
  Sender: FDA-Public Use
  Company Number: JP-009507513-1408JPN000625

PATIENT
  Age: 70 Year
  Sex: Male
  Weight: 54.5 kg

DRUGS (18)
  1. URITOS [Suspect]
     Active Substance: IMIDAFENACIN
     Indication: HYPERTONIC BLADDER
     Dosage: 0.1 MG, BID
     Route: 048
     Dates: start: 20140714, end: 20140804
  2. FAMOTIDINE D [Concomitant]
     Active Substance: FAMOTIDINE
     Indication: CHRONIC GASTRITIS
     Dosage: 20 MG, QD
     Route: 048
     Dates: start: 20130629, end: 20140813
  3. MAGLAX (MAGNESIUM OXIDE) [Concomitant]
     Active Substance: MAGNESIUM OXIDE
     Indication: CONSTIPATION
     Dosage: 330 MG, TID
     Route: 048
     Dates: start: 20130624
  4. PEMBROLIZUMAB. [Suspect]
     Active Substance: PEMBROLIZUMAB
     Indication: NON-SMALL CELL LUNG CANCER
     Dosage: 10 MG/KG, Q3W
     Route: 042
     Dates: start: 20140401, end: 20140623
  5. PEMBROLIZUMAB. [Suspect]
     Active Substance: PEMBROLIZUMAB
     Dosage: 10 MG/KG, Q3W
     Route: 042
     Dates: start: 20140714, end: 20140714
  6. PEMBROLIZUMAB. [Suspect]
     Active Substance: PEMBROLIZUMAB
     Dosage: 10 MG/KG, Q3W
     Route: 042
     Dates: start: 20140805, end: 20140805
  7. BROCIN CODEINE [Suspect]
     Active Substance: CODEINE PHOSPHATE\PRUNUS SEROTINA BARK
     Indication: COUGH
     Dosage: 2 ML, TID
     Route: 048
     Dates: start: 20140723, end: 20140731
  8. NAUZELIN [Concomitant]
     Active Substance: DOMPERIDONE
     Indication: NAUSEA
     Dosage: 10 MG, TID
     Route: 048
     Dates: start: 20140707
  9. HIRUDOID [Concomitant]
     Active Substance: GLYCOSAMINOGLYCANS
     Indication: RASH
     Dosage: 1 APPLICATION DAILY, PRN
     Route: 061
     Dates: start: 20140409
  10. ETIZOLAM [Concomitant]
     Active Substance: ETIZOLAM
     Indication: INSOMNIA
     Dosage: 0.5 MG, QD
     Route: 048
     Dates: start: 20130716, end: 20140813
  11. RESTAMIN (DIPHENHYDRAMINE HYDROCHLORIDE (+) ENOXOLONE (+) ZINC OXIDE) [Concomitant]
     Indication: RASH
     Dosage: 1 APPLICATION DAILY, PRN
     Route: 061
     Dates: start: 20140430
  12. DIMEMORFAN PHOSPHATE [Concomitant]
     Active Substance: DIMEMORFAN PHOSPHATE
     Indication: COUGH
     Dosage: 1 TABLET, TID
     Route: 048
     Dates: start: 20140611
  13. AVOLVE [Suspect]
     Active Substance: DUTASTERIDE
     Indication: PROSTATOMEGALY
     Dosage: 0.5 MG, QD
     Route: 048
     Dates: start: 20130325
  14. CRAVIT [Concomitant]
     Active Substance: LEVOFLOXACIN
     Indication: PYREXIA
     Dosage: 500 MG, QD
     Route: 048
     Dates: start: 20140713, end: 20140719
  15. MUCOSAL [Concomitant]
     Indication: COUGH
     Dosage: 15 MG, TID
     Route: 048
     Dates: start: 20140611
  16. CRESTOR [Concomitant]
     Active Substance: ROSUVASTATIN CALCIUM
     Indication: DYSLIPIDAEMIA
     Dosage: 2.5 MG, QD
     Route: 048
     Dates: start: 20130520
  17. GASMOTIN [Concomitant]
     Active Substance: MOSAPRIDE CITRATE
     Indication: CHRONIC GASTRITIS
     Dosage: 5 MG, TID
     Route: 048
     Dates: start: 20131220, end: 20140814
  18. BIOFERMIN (BACILLUS SUBTILIS (+) LACTOBACILLUS ACIDOPHILUS (+) STREPTO [Concomitant]
     Active Substance: BACILLUS SUBTILIS\LACTOBACILLUS ACIDOPHILUS\STREPTOCOCCUS FAECAIS
     Indication: GASTROINTESTINAL INJURY
     Dosage: 1 G, TID
     Route: 048
     Dates: start: 20130810, end: 20140814

REACTIONS (1)
  - Diverticulitis [Recovered/Resolved]

NARRATIVE: CASE EVENT DATE: 20140726
